FAERS Safety Report 8160789-5 (Version None)
Quarter: 2012Q1

REPORT INFORMATION
  Report Type: 
  Country: None (occurrence: None)
  Receive Date: 20120223
  Receipt Date: 20120217
  Transmission Date: 20120608
  Serious: Yes (Other)
  Sender: FDA-Public Use
  Company Number: PHHY2012MX015032

PATIENT
  Sex: Female

DRUGS (3)
  1. MONTELUKAST [Concomitant]
     Dosage: 1 DF (UNK), DAILY
  2. DIOVAN HCT [Suspect]
     Indication: HYPERTENSION
     Dosage: 1.25 DF (160/12.5 MG), DAILY
     Dates: start: 20120101
  3. CLONAZEPAM [Concomitant]
     Dosage: 1 DF (1 SPOONFUL), TID (EVERY 8 HOURS)
     Dates: start: 20111101

REACTIONS (3)
  - EFFUSION [None]
  - BLOOD PRESSURE FLUCTUATION [None]
  - ABNORMAL SENSATION IN EYE [None]
